FAERS Safety Report 9354654 (Version 1)
Quarter: 2013Q2

REPORT INFORMATION
  Report Type: Spontaneous
  Country: ES (occurrence: ES)
  Receive Date: 20130618
  Receipt Date: 20130618
  Transmission Date: 20140414
  Serious: Yes (Hospitalization, Other)
  Sender: FDA-Public Use
  Company Number: ES-ELI_LILLY_AND_COMPANY-ES201306003326

PATIENT
  Age: 58 Year
  Sex: Female

DRUGS (1)
  1. FORSTEO [Suspect]
     Indication: OSTEOPOROSIS
     Dosage: 20 UG, QD
     Route: 058
     Dates: start: 201303, end: 20130521

REACTIONS (4)
  - Myocardial infarction [Unknown]
  - Aortic dissection [Unknown]
  - Arterial haemorrhage [Unknown]
  - Thrombosis [Unknown]
